FAERS Safety Report 17467217 (Version 1)
Quarter: 2020Q1

REPORT INFORMATION
  Report Type: Spontaneous
  Country: GB (occurrence: GB)
  Receive Date: 20200227
  Receipt Date: 20200227
  Transmission Date: 20200409
  Serious: Yes (Other)
  Sender: FDA-Public Use
  Company Number: GB-PFIZER INC-2020081314

PATIENT
  Age: 39 Year
  Sex: Female
  Weight: 90 kg

DRUGS (2)
  1. CHAMPIX [Suspect]
     Active Substance: VARENICLINE TARTRATE
     Dosage: UNK (0.5MG/1MG)
     Dates: start: 20200117
  2. UNIROID [Concomitant]
     Dosage: 2 DF, 1X/DAY
     Dates: start: 20200131

REACTIONS (5)
  - Urinary retention [Recovering/Resolving]
  - Sensitive skin [Unknown]
  - Pain in extremity [Unknown]
  - Constipation [Recovering/Resolving]
  - Dysuria [Unknown]

NARRATIVE: CASE EVENT DATE: 20200131
